FAERS Safety Report 7730297-1 (Version None)
Quarter: 2011Q3

REPORT INFORMATION
  Report Type: 
  Country: None (occurrence: None)
  Receive Date: 20110906
  Receipt Date: 20110823
  Transmission Date: 20111222
  Serious: Yes (Other)
  Sender: FDA-Public Use
  Company Number: US-ELI_LILLY_AND_COMPANY-US201009007626

PATIENT
  Sex: Female

DRUGS (3)
  1. FORTEO [Suspect]
     Indication: OSTEOPOROSIS
     Dosage: 20 UG, DAILY (1/D)
     Dates: start: 20090101, end: 20091201
  2. FORTEO [Suspect]
     Dosage: 20 UG, DAILY (1/D)
     Dates: start: 20100801
  3. FORTEO [Suspect]
     Dosage: 20 UG, DAILY (1/D)

REACTIONS (8)
  - AMNESIA [None]
  - BRAIN NEOPLASM [None]
  - MUSCULOSKELETAL CHEST PAIN [None]
  - VISUAL IMPAIRMENT [None]
  - FALL [None]
  - CATARACT [None]
  - PAIN IN EXTREMITY [None]
  - MUSCLE SPASMS [None]
